FAERS Safety Report 9027986 (Version 1)
Quarter: 2013Q1

REPORT INFORMATION
  Report Type: Spontaneous
  Country: US (occurrence: US)
  Receive Date: 20130123
  Receipt Date: 20130123
  Transmission Date: 20140127
  Serious: No
  Sender: FDA-Public Use
  Company Number: US-PFIZER INC-2013024486

PATIENT
  Age: 56 Year
  Sex: Female
  Weight: 65.76 kg

DRUGS (3)
  1. ZOLOFT [Suspect]
     Indication: BIPOLAR DISORDER
     Dosage: 200 MG, 1X/DAY
     Route: 048
     Dates: start: 201109
  2. CYMBALTA [Concomitant]
     Dosage: UNK
  3. SEROQUEL [Concomitant]
     Dosage: UNK

REACTIONS (2)
  - Hypersensitivity [Unknown]
  - Malaise [Unknown]
